FAERS Safety Report 13652146 (Version 1)
Quarter: 2017Q2

REPORT INFORMATION
  Report Type: Report from Study
  Country: SE (occurrence: SE)
  Receive Date: 20170614
  Receipt Date: 20170614
  Transmission Date: 20170830
  Serious: Yes (Hospitalization)
  Sender: FDA-Public Use
  Company Number: SE-AMGEN-SWECT2012069631

PATIENT
  Age: 71 Year
  Sex: Female
  Weight: 82.9 kg

DRUGS (24)
  1. SODIUM PICOSULFATE [Concomitant]
     Active Substance: SODIUM PICOSULFATE
     Dosage: 0.2 MG, UNK
     Route: 048
     Dates: start: 20110306
  2. ACETYLSALISYLSYRE [Concomitant]
     Dosage: 75 MG, UNK
     Route: 048
     Dates: start: 20091019
  3. PLACEBO [Suspect]
     Active Substance: UNSPECIFIED INGREDIENT
     Indication: OVARIAN CANCER
     Dosage: UNK
     Dates: start: 20120209, end: 20121018
  4. OMEPRAZOL [Concomitant]
     Active Substance: OMEPRAZOLE
     Dosage: 20 MG, UNK
     Route: 048
     Dates: start: 20120223
  5. LOSARTAN/HIDROCLOTIAZIDA [Concomitant]
     Dosage: 100 MG, UNK
     Route: 048
     Dates: start: 20111219
  6. ACETYLCYSTEIN [Concomitant]
     Active Substance: ACETYLCYSTEINE
     Dosage: 200 MG, UNK
     Route: 048
     Dates: start: 20101228
  7. BETAMETASONA [Concomitant]
     Active Substance: BETAMETHASONE
     Dosage: 8 MG, UNK
     Route: 042
     Dates: start: 20120209
  8. MORPHIN [Concomitant]
     Active Substance: MORPHINE
     Dosage: 10 MG, UNK
     Route: 048
     Dates: start: 20110306
  9. RANITIDIN [Concomitant]
     Active Substance: RANITIDINE HYDROCHLORIDE
     Dosage: 50 MG, UNK
     Route: 042
     Dates: start: 20120209
  10. KARVEDILOL IVAX [Concomitant]
     Dosage: 25 MG, UNK
     Route: 048
     Dates: start: 20110306
  11. MAGNESIUM HYDROXID [Concomitant]
     Active Substance: MAGNESIUM HYDROXIDE
     Dosage: 250 MG, UNK
     Route: 048
     Dates: start: 20110306
  12. AMITRIPTYLIN [Concomitant]
     Active Substance: AMITRIPTYLINE
     Dosage: 25 MG, UNK
     Route: 048
     Dates: start: 20110306
  13. POTASSIUMCLORID [Concomitant]
     Dosage: 750 MG, UNK
     Route: 048
     Dates: start: 20110315
  14. PACLITAXEL. [Concomitant]
     Active Substance: PACLITAXEL
     Indication: OVARIAN CANCER
     Dosage: 123 MG, UNK
     Route: 042
     Dates: start: 20120726
  15. DIAZEPAM. [Concomitant]
     Active Substance: DIAZEPAM
     Dosage: 5 MG, UNK
     Route: 048
     Dates: start: 20120207
  16. KLEMASTIN [Concomitant]
     Dosage: 2 MG, UNK
     Route: 042
     Dates: start: 20120209
  17. PARACETAMOL [Concomitant]
     Active Substance: ACETAMINOPHEN
     Dosage: 1000 MG, UNK
     Route: 048
     Dates: start: 20110306
  18. FUCIDIN [Concomitant]
     Active Substance: FUSIDIC ACID
     Dosage: 2 MG, UNK
     Route: 058
     Dates: start: 20120906
  19. STERCULIA URENS GUM [Concomitant]
     Dosage: UNK
     Route: 048
     Dates: start: 20110306, end: 20121029
  20. SIMVASTIN [Concomitant]
     Active Substance: SIMVASTATIN
     Dosage: 20 MG, UNK
     Route: 048
     Dates: start: 20111219
  21. RED BLOOD CELLS [Concomitant]
     Active Substance: HUMAN RED BLOOD CELL
     Dosage: UNK
     Route: 042
     Dates: start: 20121004, end: 20121004
  22. HYDROKLORTIAZID [Concomitant]
     Dosage: 25 MG, UNK
     Route: 048
     Dates: start: 20111219
  23. ISOSORBIDMONONITRAT [Concomitant]
     Dosage: 30 MG, UNK
     Route: 048
     Dates: start: 19991015
  24. AMLODIPIN [Concomitant]
     Active Substance: AMLODIPINE BESYLATE
     Dosage: 5 MG, UNK
     Route: 048
     Dates: start: 20110306

REACTIONS (1)
  - Ascites [Recovered/Resolved]

NARRATIVE: CASE EVENT DATE: 20121023
